FAERS Safety Report 17368785 (Version 6)
Quarter: 2020Q2

REPORT INFORMATION
  Report Type: Report from Study
  Country: US (occurrence: US)
  Receive Date: 20200204
  Receipt Date: 20200504
  Transmission Date: 20200713
  Serious: Yes (Hospitalization)
  Sender: FDA-Public Use
  Company Number: US-ACTELION-A-NJ2018-168390

PATIENT
  Age: 58 Year
  Sex: Female
  Weight: 90.7 kg

DRUGS (4)
  1. REMODULIN [Suspect]
     Active Substance: TREPROSTINIL
     Dosage: UNK
     Route: 042
  2. ADCIRCA [Concomitant]
     Active Substance: TADALAFIL
  3. OPSUMIT [Suspect]
     Active Substance: MACITENTAN
     Indication: PULMONARY ARTERIAL HYPERTENSION
     Dosage: 10 MG, QD
     Route: 048
  4. REMODULIN [Suspect]
     Active Substance: TREPROSTINIL
     Indication: PRODUCT USED FOR UNKNOWN INDICATION
     Dosage: UNK
     Route: 042
     Dates: end: 20181003

REACTIONS (25)
  - Lung transplant [Recovered/Resolved]
  - Headache [Unknown]
  - Diarrhoea [Unknown]
  - Device occlusion [Unknown]
  - Catheter site erythema [Unknown]
  - Ocular hyperaemia [Unknown]
  - Transplant evaluation [Unknown]
  - Cough [Not Recovered/Not Resolved]
  - Influenza [Unknown]
  - Oxygen saturation decreased [Unknown]
  - Catheter management [Unknown]
  - Malaise [Unknown]
  - Eye swelling [Unknown]
  - Body temperature increased [Unknown]
  - Rash [Unknown]
  - Blister [Unknown]
  - Catheter site pain [Unknown]
  - Dyspnoea [Not Recovered/Not Resolved]
  - Catheter site vesicles [Unknown]
  - Respiratory tract congestion [Not Recovered/Not Resolved]
  - Pain [Unknown]
  - Wheezing [Not Recovered/Not Resolved]
  - Sinusitis [Unknown]
  - Product dose omission [Unknown]
  - Retching [Unknown]

NARRATIVE: CASE EVENT DATE: 20180813
